FAERS Safety Report 10617199 (Version 1)
Quarter: 2014Q4

REPORT INFORMATION
  Report Type: Spontaneous
  Country: US (occurrence: US)
  Receive Date: 20141201
  Receipt Date: 20141201
  Transmission Date: 20150529
  Serious: Yes (Other)
  Sender: FDA-Public Use
  Company Number: US-BAYER-2014-173990

PATIENT
  Age: 26 Year
  Sex: Female

DRUGS (1)
  1. MIRENA [Suspect]
     Active Substance: LEVONORGESTREL
     Indication: CONTRACEPTION
     Dosage: 20 MCG/24HR, CONT
     Dates: start: 201001, end: 2010

REACTIONS (17)
  - Weight increased [Recovering/Resolving]
  - Abdominal tenderness [Not Recovered/Not Resolved]
  - Abdominal pain lower [None]
  - Inflammation [None]
  - Uterine prolapse [None]
  - Adenomyosis [None]
  - Infertility female [None]
  - Hormone level abnormal [None]
  - Genital haemorrhage [None]
  - Hot flush [None]
  - Gene mutation [None]
  - Premenstrual syndrome [None]
  - Irritable bowel syndrome [None]
  - Acne [None]
  - Dyspareunia [None]
  - Endometriosis [None]
  - Constipation [None]

NARRATIVE: CASE EVENT DATE: 2010
